FAERS Safety Report 4617005-8 (Version None)
Quarter: 2005Q2

REPORT INFORMATION
  Report Type: 
  Country: None (occurrence: None)
  Receive Date: 20050311
  Receipt Date: 20041214
  Transmission Date: 20051028
  Serious: No
  Sender: FDA-Public Use
  Company Number: 2004-00929

PATIENT
  Age: 80 Year
  Sex: Male
  Weight: 78.5 kg

DRUGS (1)
  1. VELCADE [Suspect]
     Indication: MULTIPLE MYELOMA
     Dosage: 2.30 MG, IV BOLUS
     Route: 040
     Dates: start: 20040719, end: 20041209

REACTIONS (4)
  - CONSTIPATION [None]
  - CONTUSION [None]
  - RECTAL HAEMORRHAGE [None]
  - THROMBOCYTOPENIA [None]
